FAERS Safety Report 16834275 (Version 2)
Quarter: 2019Q3

REPORT INFORMATION
  Report Type: Spontaneous
  Country: US (occurrence: US)
  Receive Date: 20190920
  Receipt Date: 20190923
  Transmission Date: 20191005
  Serious: Yes (Other)
  Sender: FDA-Public Use
  Company Number: US-PFIZER INC-2019408654

PATIENT
  Age: 65 Year
  Sex: Male
  Weight: 109.32 kg

DRUGS (1)
  1. CHANTIX [Suspect]
     Active Substance: VARENICLINE TARTRATE
     Indication: SMOKING CESSATION THERAPY
     Dosage: UNK
     Route: 048
     Dates: start: 2015

REACTIONS (3)
  - Cataract [Unknown]
  - Neoplasm malignant [Unknown]
  - Drug ineffective [Unknown]
